FAERS Safety Report 4943495-7 (Version None)
Quarter: 2006Q1

REPORT INFORMATION
  Report Type: 
  Country: None (occurrence: None)
  Receive Date: 20060309
  Receipt Date: 20060224
  Transmission Date: 20060701
  Serious: Yes (Hospitalization)
  Sender: FDA-Public Use
  Company Number: 2006MP000216

PATIENT
  Age: 64 Year
  Sex: Female
  Weight: 70.0807 kg

DRUGS (8)
  1. GLIADEL [Suspect]
     Indication: GLIOBLASTOMA MULTIFORME
     Dosage: 61.6 MG; X1; ICER
     Dates: start: 20050712, end: 20050712
  2. TEMODAR [Suspect]
     Indication: GLIOBLASTOMA MULTIFORME
     Dosage: 75 MG/M**2; QD; PO
     Route: 048
     Dates: start: 20050823, end: 20051007
  3. TEMODAR [Suspect]
     Indication: GLIOBLASTOMA MULTIFORME
     Dosage: 200 MG/M**2; QD X5DQ28D; PO
     Route: 048
     Dates: start: 20051114, end: 20051220
  4. TEMODAR [Suspect]
     Indication: GLIOBLASTOMA MULTIFORME
     Dosage: 150 MG/M**2; QD X5DQ28D; PO
     Route: 048
     Dates: start: 20051221
  5. NEXIUM [Concomitant]
  6. PHENOBARBITAL TAB [Concomitant]
  7. LIPITOR [Concomitant]
  8. HYDROCODONE [Concomitant]

REACTIONS (7)
  - BALANCE DISORDER [None]
  - FALL [None]
  - HAEMATOMA [None]
  - HAEMORRHAGE [None]
  - HEAD INJURY [None]
  - SUBDURAL HAEMATOMA [None]
  - THROMBOCYTOPENIA [None]
